FAERS Safety Report 6238015-3 (Version None)
Quarter: 2009Q2

REPORT INFORMATION
  Report Type: 
  Country: None (occurrence: None)
  Receive Date: 20090617
  Receipt Date: 20090617
  Transmission Date: 20091009
  Serious: Yes (Other)
  Sender: FDA-Public Use
  Company Number: None

PATIENT
  Age: 46 Year
  Sex: Female
  Weight: 50.3493 kg

DRUGS (1)
  1. MIRENA [Suspect]

REACTIONS (1)
  - PREGNANCY TEST POSITIVE [None]
